FAERS Safety Report 12790847 (Version 2)
Quarter: 2023Q4

REPORT INFORMATION
  Report Type: Spontaneous
  Country: TR (occurrence: TR)
  Receive Date: 20160929
  Receipt Date: 20231002
  Transmission Date: 20240110
  Serious: Yes (Other)
  Sender: FDA-Public Use
  Company Number: TR-MLMSERVICE-20160921-0431470-1

PATIENT
  Age: 35 Year
  Sex: Male

DRUGS (1)
  1. CLINDAMYCIN [Suspect]
     Active Substance: CLINDAMYCIN
     Indication: Tonsillitis
     Route: 065

REACTIONS (1)
  - Kounis syndrome [Unknown]
